FAERS Safety Report 10672908 (Version 2)
Quarter: 2015Q1

REPORT INFORMATION
  Report Type: Spontaneous
  Country: US (occurrence: US)
  Receive Date: 20141223
  Receipt Date: 20150122
  Transmission Date: 20150720
  Serious: Yes (Other)
  Sender: FDA-Public Use
  Company Number: US-PFIZER INC-2014349896

PATIENT
  Age: 68 Year
  Sex: Male
  Weight: 108 kg

DRUGS (2)
  1. IBUPROFEN. [Suspect]
     Active Substance: IBUPROFEN
     Indication: ARTHRITIS
     Dosage: 800 MG, 2X/DAY
  2. CELEBREX [Suspect]
     Active Substance: CELECOXIB
     Dosage: 200 MG, DAILY
     Route: 048
     Dates: end: 2011

REACTIONS (4)
  - Condition aggravated [Unknown]
  - Arthritis [Unknown]
  - Myocardial infarction [Recovered/Resolved]
  - Back disorder [Unknown]

NARRATIVE: CASE EVENT DATE: 201202
